FAERS Safety Report 16490479 (Version 1)
Quarter: 2019Q2

REPORT INFORMATION
  Report Type: Spontaneous
  Country: US (occurrence: US)
  Receive Date: 20190628
  Receipt Date: 20190628
  Transmission Date: 20190711
  Serious: No
  Sender: FDA-Public Use
  Company Number: US-TEVA-2019-US-1024016

PATIENT
  Sex: Female

DRUGS (1)
  1. DICLOXACILLIN [Suspect]
     Active Substance: DICLOXACILLIN
     Indication: MASTITIS
     Dates: start: 20190301

REACTIONS (2)
  - Product use complaint [Unknown]
  - Foreign body in respiratory tract [Unknown]

NARRATIVE: CASE EVENT DATE: 20190301
